FAERS Safety Report 17389038 (Version 4)
Quarter: 2024Q3

REPORT INFORMATION
  Report Type: Spontaneous
  Country: DE (occurrence: DE)
  Receive Date: 20200206
  Receipt Date: 20240926
  Transmission Date: 20241017
  Serious: Yes (Other)
  Sender: BRISTOL MYERS SQUIBB
  Company Number: DE-BRISTOL-MYERS SQUIBB COMPANY-BMS-2020-009234

PATIENT
  Age: 78 Year
  Sex: Female

DRUGS (6)
  1. ELIQUIS [Suspect]
     Active Substance: APIXABAN
     Indication: Product used for unknown indication
     Dosage: 2 UNK UNK, BID
  2. BISOPROLOL FUMARATE [Suspect]
     Active Substance: BISOPROLOL FUMARATE
     Indication: Product used for unknown indication
     Dosage: 1 UNK UNK, 1X/DAY (1-0-0-0)
  3. TORSEMIDE [Suspect]
     Active Substance: TORSEMIDE
     Indication: Product used for unknown indication
     Dosage: UNK, 1X/DAY (0.5-0-0-0)
  4. SPIRONOLACTONE [Suspect]
     Active Substance: SPIRONOLACTONE
     Indication: Product used for unknown indication
     Dosage: UNK, 1X/DAY (0.5-0-0-)
  5. ISOSORBIDE DINITRATE [Suspect]
     Active Substance: ISOSORBIDE DINITRATE
     Indication: Product used for unknown indication
     Dosage: UNK
  6. METFORMIN HYDROCHLORIDE [Suspect]
     Active Substance: METFORMIN HYDROCHLORIDE
     Indication: Product used for unknown indication
     Dosage: UNK

REACTIONS (10)
  - Renal impairment [Unknown]
  - Glomerular filtration rate abnormal [Unknown]
  - Red cell distribution width abnormal [Unknown]
  - Gamma-glutamyltransferase abnormal [Unknown]
  - Haemoglobin decreased [Unknown]
  - Haematocrit abnormal [Unknown]
  - Glycosylated haemoglobin increased [Unknown]
  - Blood pressure abnormal [Unknown]
  - Blood creatinine increased [Unknown]
  - Blood glucose abnormal [Unknown]
